FAERS Safety Report 12160700 (Version 2)
Quarter: 2016Q3

REPORT INFORMATION
  Report Type: Report from Study
  Country: BR (occurrence: BR)
  Receive Date: 20160308
  Receipt Date: 20160906
  Transmission Date: 20161109
  Serious: Yes (Hospitalization, Other)
  Sender: FDA-Public Use
  Company Number: BR-ABBVIE-16K-020-1573601-00

PATIENT
  Age: 66 Year
  Sex: Female
  Weight: 57 kg

DRUGS (8)
  1. HUMIRA [Suspect]
     Active Substance: ADALIMUMAB
     Indication: RHEUMATOID ARTHRITIS
     Route: 058
     Dates: start: 20110101, end: 201608
  2. PREDNISONE. [Concomitant]
     Active Substance: PREDNISONE
     Indication: PAIN
     Route: 048
  3. DICLOFENAC SODIUM. [Concomitant]
     Active Substance: DICLOFENAC SODIUM
     Indication: PAIN
     Route: 048
  4. OMEPRAZOLE. [Concomitant]
     Active Substance: OMEPRAZOLE
     Indication: GASTRIC DISORDER
     Route: 048
  5. OMEPRAZOLE. [Concomitant]
     Active Substance: OMEPRAZOLE
     Indication: PROPHYLAXIS
  6. TRAMADOL. [Concomitant]
     Active Substance: TRAMADOL
     Indication: PAIN
     Route: 048
  7. ALPRAZOLAM. [Concomitant]
     Active Substance: ALPRAZOLAM
     Indication: SLEEP DISORDER THERAPY
     Route: 048
     Dates: start: 2013
  8. CALCIUM [Concomitant]
     Active Substance: CALCIUM
     Indication: BONE DISORDER
     Route: 048

REACTIONS (14)
  - Malaise [Unknown]
  - Hypertension [Recovering/Resolving]
  - Insomnia [Recovering/Resolving]
  - Visual acuity reduced [Recovering/Resolving]
  - Toothache [Not Recovered/Not Resolved]
  - Lacrimation increased [Recovering/Resolving]
  - Cerebrovascular accident [Recovered/Resolved]
  - Erythema [Recovered/Resolved with Sequelae]
  - Thyroid disorder [Recovering/Resolving]
  - Ocular hyperaemia [Recovering/Resolving]
  - Swelling face [Recovered/Resolved]
  - Device related infection [Recovering/Resolving]
  - Toothache [Recovering/Resolving]
  - Tooth disorder [Unknown]

NARRATIVE: CASE EVENT DATE: 2012
